FAERS Safety Report 24409081 (Version 1)
Quarter: 2024Q4

REPORT INFORMATION
  Report Type: Other
  Country: CO (occurrence: CO)
  Receive Date: 20241008
  Receipt Date: 20241008
  Transmission Date: 20250114
  Serious: No
  Sender: TOLMAR
  Company Number: CO-TOLMAR, INC.-24CO052755

PATIENT
  Age: 94 Year
  Sex: Male

DRUGS (2)
  1. ELIGARD [Suspect]
     Active Substance: LEUPROLIDE ACETATE
     Indication: Prostate cancer
     Dosage: 22.5 MILLIGRAM, Q 3 MONTH
     Route: 058
     Dates: start: 20240916
  2. ELIGARD [Suspect]
     Active Substance: LEUPROLIDE ACETATE
     Indication: Prostate cancer
     Dosage: UNK

REACTIONS (2)
  - Rash erythematous [Not Recovered/Not Resolved]
  - Pruritus [Not Recovered/Not Resolved]

NARRATIVE: CASE EVENT DATE: 20240916
